FAERS Safety Report 9677925 (Version 2)
Quarter: 2013Q4

REPORT INFORMATION
  Report Type: Spontaneous
  Country: GB (occurrence: GB)
  Receive Date: 20131108
  Receipt Date: 20131108
  Transmission Date: 20140711
  Serious: Yes (Other)
  Sender: FDA-Public Use
  Company Number: GB-TEVA-413278ISR

PATIENT
  Age: 26 Year
  Sex: 0

DRUGS (30)
  1. TRAMADOL [Suspect]
     Indication: PAIN
     Route: 065
  2. TRAMADOL [Suspect]
     Indication: MYALGIA
  3. TRAMADOL [Suspect]
     Indication: OSTEOPOROSIS
  4. TRAMADOL [Suspect]
     Indication: OSTEOARTHRITIS
  5. TRAMADOL [Suspect]
     Indication: RHEUMATOID ARTHRITIS
  6. TRAMADOL [Suspect]
     Indication: HYPERMOBILITY SYNDROME
  7. NAPROXEN [Suspect]
     Indication: PAIN
     Route: 065
  8. NAPROXEN [Suspect]
     Indication: MYALGIA
  9. NAPROXEN [Suspect]
     Indication: OSTEOPOROSIS
  10. NAPROXEN [Suspect]
     Indication: OSTEOARTHRITIS
  11. NAPROXEN [Suspect]
     Indication: RHEUMATOID ARTHRITIS
  12. NAPROXEN [Suspect]
     Indication: HYPERMOBILITY SYNDROME
  13. DICLOFENAC [Suspect]
     Indication: PAIN
     Route: 065
  14. DICLOFENAC [Suspect]
     Indication: MYALGIA
  15. DICLOFENAC [Suspect]
     Indication: OSTEOPOROSIS
  16. DICLOFENAC [Suspect]
     Indication: OSTEOARTHRITIS
  17. DICLOFENAC [Suspect]
     Indication: RHEUMATOID ARTHRITIS
  18. DICLOFENAC [Suspect]
     Indication: HYPERMOBILITY SYNDROME
  19. CO-CODAMOL [Suspect]
     Indication: PAIN
     Route: 065
  20. CO-CODAMOL [Suspect]
     Indication: MYALGIA
  21. CO-CODAMOL [Suspect]
     Indication: OSTEOPOROSIS
  22. CO-CODAMOL [Suspect]
     Indication: OSTEOARTHRITIS
  23. CO-CODAMOL [Suspect]
     Indication: RHEUMATOID ARTHRITIS
  24. CO-CODAMOL [Suspect]
     Indication: HYPERMOBILITY SYNDROME
  25. LEFLUNOMIDE [Suspect]
     Indication: PAIN
     Route: 065
  26. LEFLUNOMIDE [Suspect]
     Indication: MYALGIA
  27. LEFLUNOMIDE [Suspect]
     Indication: OSTEOPOROSIS
  28. LEFLUNOMIDE [Suspect]
     Indication: OSTEOARTHRITIS
  29. LEFLUNOMIDE [Suspect]
     Indication: RHEUMATOID ARTHRITIS
  30. LEFLUNOMIDE [Suspect]
     Indication: HYPERMOBILITY SYNDROME

REACTIONS (2)
  - Suicidal ideation [Unknown]
  - Drug ineffective [Unknown]
